FAERS Safety Report 8108028-5 (Version None)
Quarter: 2012Q1

REPORT INFORMATION
  Report Type: 
  Country: None (occurrence: None)
  Receive Date: 20120202
  Receipt Date: 20120127
  Transmission Date: 20120608
  Serious: Yes (Hospitalization)
  Sender: FDA-Public Use
  Company Number: IT-JNJFOC-20120112430

PATIENT
  Sex: Male
  Weight: 70 kg

DRUGS (3)
  1. PALIPERIDONE PALMITATE [Suspect]
     Dates: start: 20111121
  2. DELORAZEPAM [Concomitant]
     Indication: INSOMNIA
  3. PALIPERIDONE PALMITATE [Suspect]
     Indication: SCHIZOPHRENIA
     Dates: start: 20111028

REACTIONS (1)
  - HALLUCINATION [None]
